FAERS Safety Report 18467093 (Version 3)
Quarter: 2021Q4

REPORT INFORMATION
  Report Type: Report from Study
  Country: BR (occurrence: BR)
  Receive Date: 20201105
  Receipt Date: 20211001
  Transmission Date: 20220303
  Serious: Yes (Hospitalization, Other)
  Sender: FDA-Public Use
  Company Number: BR-TAKEDA-2020TUS026290

PATIENT
  Sex: Female

DRUGS (9)
  1. VEDOLIZUMAB [Suspect]
     Active Substance: VEDOLIZUMAB
     Indication: Crohn^s disease
     Dosage: 300 MILLIGRAM
     Route: 042
     Dates: start: 20200213
  2. CIPROFLOXACIN HYDROCHLORIDE [Suspect]
     Active Substance: CIPROFLOXACIN HYDROCHLORIDE
     Indication: Anal fistula
     Dosage: 500 MILLIGRAM, Q12H
     Route: 065
  3. CIPROFLOXACIN HYDROCHLORIDE [Suspect]
     Active Substance: CIPROFLOXACIN HYDROCHLORIDE
     Indication: Vaginal fistula
  4. PROLIVE [Concomitant]
     Indication: Crohn^s disease
     Dosage: UNK
  5. BEPANTOL [Concomitant]
     Indication: Skin abrasion
     Dosage: UNK UNK, TID
  6. HIPOGLOS [COLECALCIFEROL;RETINOL;ZINC OXIDE] [Concomitant]
     Indication: Skin abrasion
     Dosage: UNK UNK, TID
  7. METICORTEN [Concomitant]
     Active Substance: PREDNISONE
     Dosage: 5 MILLIGRAM, QD
  8. FLAGYL [Concomitant]
     Active Substance: METRONIDAZOLE\METRONIDAZOLE HYDROCHLORIDE
     Dosage: 250 MILLIGRAM, BID
  9. DIOVAN [Concomitant]
     Active Substance: VALSARTAN
     Indication: Hypertension
     Dosage: 160 MILLIGRAM, QD

REACTIONS (15)
  - Haematochezia [Unknown]
  - Anal fistula [Recovered/Resolved]
  - Vaginal fistula [Recovered/Resolved]
  - Crohn^s disease [Unknown]
  - Vaginal haemorrhage [Unknown]
  - Illness [Recovered/Resolved]
  - Vision blurred [Recovered/Resolved]
  - Blood pressure decreased [Unknown]
  - Infection [Recovered/Resolved]
  - Diarrhoea [Recovered/Resolved]
  - Anaemia [Unknown]
  - Dermatitis diaper [Not Recovered/Not Resolved]
  - Secretion discharge [Not Recovered/Not Resolved]
  - Pruritus genital [Not Recovered/Not Resolved]
  - Off label use [Unknown]

NARRATIVE: CASE EVENT DATE: 20200101
